FAERS Safety Report 6282479-6 (Version None)
Quarter: 2009Q3

REPORT INFORMATION
  Report Type: 
  Country: None (occurrence: None)
  Receive Date: 20090721
  Receipt Date: 20090721
  Transmission Date: 20100115
  Serious: Yes (Life-Threatening, Hospitalization)
  Sender: FDA-Public Use
  Company Number: None

PATIENT
  Sex: Male
  Weight: 88 kg

DRUGS (1)
  1. CETACAINE (BENZOCAINE) [Suspect]
     Indication: ECHOCARDIOGRAM
     Dosage: 9 1 SECOND SPRAYS ONCE OROPHARINGEAL
     Route: 049
     Dates: start: 20090608, end: 20090608

REACTIONS (5)
  - CHEST PAIN [None]
  - CYANOSIS [None]
  - HYPERTENSION [None]
  - HYPOXIA [None]
  - METHAEMOGLOBINAEMIA [None]
